FAERS Safety Report 5429588-9 (Version None)
Quarter: 2007Q3

REPORT INFORMATION
  Report Type: 
  Country: None (occurrence: None)
  Receive Date: 20070824
  Receipt Date: 20070809
  Transmission Date: 20080115
  Serious: Yes (Other)
  Sender: FDA-Public Use
  Company Number: 2007JP003800

PATIENT
  Age: 48 Year
  Sex: Female

DRUGS (7)
  1. PROGRAF [Suspect]
     Indication: RENAL TRANSPLANT
     Dosage: 4 MG, BID,
  2. PROGRAF [Suspect]
     Indication: RENAL TRANSPLANT
     Dosage: 0.8 MG, IV NOS
     Route: 042
  3. BASILIXIMAB (BASILIXIMAB) INJECTION [Concomitant]
  4. MYCOPHENOLATE MOFETIL [Concomitant]
  5. METHYLPREDNISOLONE [Concomitant]
  6. METHYLPREDNISOLONE [Concomitant]
  7. CYCLOSPORINE FORMULATION UNKNOWN [Concomitant]

REACTIONS (25)
  - ABDOMINAL PAIN UPPER [None]
  - ARTERITIS [None]
  - BLOOD LACTATE DEHYDROGENASE INCREASED [None]
  - CAPILLARY DISORDER [None]
  - COMPLICATIONS OF TRANSPLANTED KIDNEY [None]
  - DISORIENTATION [None]
  - DUODENITIS [None]
  - EMBOLISM [None]
  - FIBRIN [None]
  - GASTROINTESTINAL DISORDER [None]
  - GRAFT DYSFUNCTION [None]
  - GRANULOMA [None]
  - HAEMATOCHEZIA [None]
  - HAEMODIALYSIS [None]
  - HAEMOGLOBIN DECREASED [None]
  - HYPERTENSION [None]
  - KIDNEY TRANSPLANT REJECTION [None]
  - MUCOSAL HAEMORRHAGE [None]
  - OEDEMA MUCOSAL [None]
  - PLATELET COUNT DECREASED [None]
  - POST PROCEDURAL COMPLICATION [None]
  - PYREXIA [None]
  - THROMBOTIC MICROANGIOPATHY [None]
  - URINE OUTPUT DECREASED [None]
  - WHITE BLOOD CELL COUNT INCREASED [None]
